FAERS Safety Report 5516559-7 (Version None)
Quarter: 2007Q4

REPORT INFORMATION
  Report Type: 
  Country: None (occurrence: None)
  Receive Date: 20071114
  Receipt Date: 20070322
  Transmission Date: 20080405
  Serious: No
  Sender: FDA-Public Use
  Company Number: A0643859A

PATIENT
  Age: 71 Year
  Sex: Female

DRUGS (1)
  1. COMMIT [Suspect]
     Indication: SMOKING CESSATION THERAPY
     Route: 002
     Dates: start: 20070309, end: 20070320

REACTIONS (5)
  - DIARRHOEA [None]
  - DIZZINESS [None]
  - FATIGUE [None]
  - MALAISE [None]
  - NAUSEA [None]
